FAERS Safety Report 14329626 (Version 2)
Quarter: 2018Q1

REPORT INFORMATION
  Report Type: Spontaneous
  Country: JP (occurrence: JP)
  Receive Date: 20171227
  Receipt Date: 20180124
  Transmission Date: 20180509
  Serious: Yes (Hospitalization)
  Sender: FDA-Public Use
  Company Number: JP-SA-2017SA254635

PATIENT
  Age: 80 Year
  Sex: Female

DRUGS (10)
  1. MAGMITT [Concomitant]
     Active Substance: MAGNESIUM OXIDE
     Route: 065
     Dates: start: 20150808
  2. MUCOSTA [Concomitant]
     Active Substance: REBAMIPIDE
     Route: 065
     Dates: start: 20110530
  3. AIMIX [Concomitant]
     Active Substance: AMLODIPINE BESYLATE\IRBESARTAN
     Route: 065
     Dates: start: 20131216, end: 20150320
  4. LOXONIN [Concomitant]
     Active Substance: LOXOPROFEN SODIUM
  5. AVAPRO [Suspect]
     Active Substance: IRBESARTAN
     Indication: HYPERTENSION
     Route: 048
     Dates: start: 20150321, end: 20171124
  6. AMLODIN [Suspect]
     Active Substance: AMLODIPINE BESYLATE
     Indication: HYPERTENSION
     Dosage: ORODISPERSIBLE TABLET
     Route: 048
     Dates: start: 20150321, end: 20170419
  7. FLUITRAN [Concomitant]
     Active Substance: TRICHLORMETHIAZIDE
     Route: 065
     Dates: start: 20140120, end: 20140124
  8. AMLODIN [Suspect]
     Active Substance: AMLODIPINE BESYLATE
     Indication: HYPERTENSION
     Route: 048
     Dates: start: 20170420
  9. OPALMON [Concomitant]
     Active Substance: LIMAPROST
     Route: 065
  10. METHYCOBAL [Concomitant]
     Active Substance: METHYLCOBALAMIN

REACTIONS (2)
  - Rhabdomyolysis [Recovered/Resolved]
  - Gait disturbance [Recovered/Resolved]

NARRATIVE: CASE EVENT DATE: 20171123
